FAERS Safety Report 7438840-7 (Version None)
Quarter: 2011Q2

REPORT INFORMATION
  Report Type: 
  Country: None (occurrence: None)
  Receive Date: 20110426
  Receipt Date: 20110420
  Transmission Date: 20111010
  Serious: Yes (Hospitalization)
  Sender: FDA-Public Use
  Company Number: CN-SANOFI-AVENTIS-2011SA024594

PATIENT
  Age: 69 Year
  Sex: Female
  Weight: 80 kg

DRUGS (2)
  1. LANTUS [Suspect]
     Indication: DIABETES MELLITUS
     Route: 058
     Dates: start: 20110326
  2. LANTUS [Suspect]
     Route: 058
     Dates: start: 20070101, end: 20110325

REACTIONS (2)
  - CEREBRAL INFARCTION [None]
  - DIABETES MELLITUS INADEQUATE CONTROL [None]
